FAERS Safety Report 8082099-7 (Version None)
Quarter: 2012Q1

REPORT INFORMATION
  Report Type: 
  Country: None (occurrence: None)
  Receive Date: 20120127
  Receipt Date: 20110310
  Transmission Date: 20120608
  Serious: Yes (Hospitalization)
  Sender: FDA-Public Use
  Company Number: US-ABBOTT-11P-163-0708086-00

PATIENT
  Sex: Female
  Weight: 116.22 kg

DRUGS (2)
  1. NUMEROUS MEDICATIONS [Concomitant]
     Indication: PRODUCT USED FOR UNKNOWN INDICATION
  2. HUMIRA [Suspect]
     Indication: CROHN'S DISEASE
     Dates: start: 20090101, end: 20110201

REACTIONS (5)
  - RAYNAUD'S PHENOMENON [None]
  - SYNCOPE [None]
  - NEUROPATHY PERIPHERAL [None]
  - CROHN'S DISEASE [None]
  - ASTHMA [None]
